FAERS Safety Report 19742230 (Version 1)
Quarter: 2021Q3

REPORT INFORMATION
  Report Type: Spontaneous
  Country: FR (occurrence: FR)
  Receive Date: 20210825
  Receipt Date: 20210825
  Transmission Date: 20211014
  Serious: Yes (Hospitalization)
  Sender: FDA-Public Use
  Company Number: NVSC2021FR186763

PATIENT
  Age: 6 Year
  Sex: Female
  Weight: 21.8 kg

DRUGS (6)
  1. ORACILLINE [Concomitant]
     Active Substance: PENICILLIN V
     Indication: ANTIBIOTIC PROPHYLAXIS
     Dosage: 500000 IU, Q12H (500 000 U.I./5 ML)
     Route: 048
     Dates: start: 20210505
  2. NEORAL [Suspect]
     Active Substance: CYCLOSPORINE
     Indication: PROPHYLAXIS AGAINST TRANSPLANT REJECTION
     Dosage: 70 MG, Q12H
     Route: 048
     Dates: start: 20210526, end: 20210701
  3. NEORAL [Suspect]
     Active Substance: CYCLOSPORINE
  4. URSOFALK [Concomitant]
     Active Substance: URSODIOL
     Indication: VENOOCCLUSIVE LIVER DISEASE
     Dosage: 130 MG, Q12H
     Route: 048
     Dates: start: 20210518
  5. FLUCONAZOLE. [Concomitant]
     Active Substance: FLUCONAZOLE
     Indication: ANTIFUNGAL PROPHYLAXIS
     Dosage: 100 MG, QD
     Route: 048
     Dates: start: 20210505
  6. ZOVIRAX [Concomitant]
     Active Substance: ACYCLOVIR
     Indication: ANTIVIRAL PROPHYLAXIS
     Dosage: 800 MG, Q12H
     Route: 048
     Dates: start: 20210505

REACTIONS (1)
  - Intracranial pressure increased [Recovering/Resolving]

NARRATIVE: CASE EVENT DATE: 20210620
